FAERS Safety Report 8188556-7 (Version None)
Quarter: 2012Q1

REPORT INFORMATION
  Report Type: 
  Country: None (occurrence: None)
  Receive Date: 20120306
  Receipt Date: 20120302
  Transmission Date: 20120608
  Serious: Yes (Hospitalization, Other)
  Sender: FDA-Public Use
  Company Number: PHHY2011CA11383

PATIENT
  Sex: Female

DRUGS (13)
  1. ARAVA [Concomitant]
     Dosage: UNK UKN, UNK
  2. VENTOLIN [Concomitant]
     Dosage: UNK UKN, PRN
  3. RAMIPRIL [Concomitant]
     Dosage: UNK UKN, UNK
  4. VITAMIN D [Concomitant]
     Dosage: UNK UKN, UNK
  5. DIGOXIN [Concomitant]
     Dosage: 0.062 MG, QD
  6. POTASSIUM CHLORIDE [Concomitant]
     Dosage: UNK UKN, UNK
  7. LEFLUNOMIDE [Concomitant]
     Dosage: 20 MG, QD
  8. SPIRIVA [Concomitant]
     Dosage: UNK UKN, UNK
  9. ADVAIR DISKUS 100/50 [Concomitant]
     Dosage: 250 UG, BID
  10. ZOLEDRONOC ACID [Suspect]
     Indication: OSTEOPOROSIS
     Dosage: 5 MG, UNK
     Dates: start: 20100218
  11. ACETAMINOPHEN [Concomitant]
     Dosage: UNK UKN, UNK
  12. METOPROLOL SUCCINATE [Concomitant]
     Dosage: 50 MG, BID
  13. ALTACE [Concomitant]
     Dosage: 10 MG, QD

REACTIONS (17)
  - WHITE BLOOD CELLS URINE POSITIVE [None]
  - BACK PAIN [None]
  - LOCALISED INFECTION [None]
  - INTERNATIONAL NORMALISED RATIO INCREASED [None]
  - CREPITATIONS [None]
  - BLOOD ALKALINE PHOSPHATASE INCREASED [None]
  - ATRIAL FIBRILLATION [None]
  - RHEUMATOID ARTHRITIS [None]
  - CARDIAC FAILURE CONGESTIVE [None]
  - TACHYPNOEA [None]
  - HEART RATE IRREGULAR [None]
  - SECRETION DISCHARGE [None]
  - HYPOKALAEMIA [None]
  - CHRONIC OBSTRUCTIVE PULMONARY DISEASE [None]
  - TACHYARRHYTHMIA [None]
  - ATRIAL TACHYCARDIA [None]
  - HYPONATRAEMIA [None]
